FAERS Safety Report 5091590-7 (Version None)
Quarter: 2006Q3

REPORT INFORMATION
  Report Type: 
  Country: None (occurrence: None)
  Receive Date: 20060829
  Receipt Date: 20060719
  Transmission Date: 20061208
  Serious: Yes (Other)
  Sender: FDA-Public Use
  Company Number: US-GLAXOSMITHKLINE-A0612950A

PATIENT
  Sex: Male

DRUGS (1)
  1. DEBROX DROPS [Suspect]
     Dates: start: 20060701

REACTIONS (2)
  - DEAFNESS [None]
  - EAR DISORDER [None]
